FAERS Safety Report 4963449-4 (Version None)
Quarter: 2006Q2

REPORT INFORMATION
  Report Type: 
  Country: None (occurrence: None)
  Receive Date: 20060404
  Receipt Date: 20060404
  Transmission Date: 20061013
  Serious: Yes (Hospitalization)
  Sender: FDA-Public Use
  Company Number: None

PATIENT
  Age: 78 Year
  Sex: Male
  Weight: 83.9154 kg

DRUGS (4)
  1. UROXATRAL [Suspect]
     Indication: BENIGN PROSTATIC HYPERPLASIA
     Dosage: 10 MG PO QD
     Route: 048
  2. FOSINOPRIL [Suspect]
     Indication: HYPERTENSION
     Dosage: 40 MG PO QD
     Route: 048
  3. FELODIPINE [Suspect]
  4. CHLORTHALIDONE [Suspect]

REACTIONS (4)
  - ASTHENIA [None]
  - DIARRHOEA [None]
  - DIZZINESS [None]
  - ORTHOSTATIC HYPOTENSION [None]
